FAERS Safety Report 13699018 (Version 34)
Quarter: 2021Q4

REPORT INFORMATION
  Report Type: Spontaneous
  Country: US (occurrence: US)
  Receive Date: 20170628
  Receipt Date: 20211221
  Transmission Date: 20220303
  Serious: Yes (Hospitalization, Other)
  Sender: FDA-Public Use
  Company Number: US-INCYTE CORPORATION -2017IN004363

PATIENT

DRUGS (57)
  1. JAKAFI [Suspect]
     Active Substance: RUXOLITINIB
     Indication: Polycythaemia vera
     Dosage: 15 MG, BID
     Route: 048
     Dates: start: 20170527
  2. JAKAFI [Suspect]
     Active Substance: RUXOLITINIB
     Indication: Myelofibrosis
     Dosage: 20 MG, BID
     Route: 048
  3. JAKAFI [Suspect]
     Active Substance: RUXOLITINIB
     Dosage: 20 MG IN AM, 10 MG IN PM ALTERNATING
     Route: 048
     Dates: start: 2017
  4. JAKAFI [Suspect]
     Active Substance: RUXOLITINIB
     Dosage: 20 MG, BID, ALTERNATING
     Route: 048
     Dates: start: 201707
  5. JAKAFI [Suspect]
     Active Substance: RUXOLITINIB
     Dosage: 20 MG, BID
     Route: 048
  6. JAKAFI [Suspect]
     Active Substance: RUXOLITINIB
     Dosage: 25 MG, BID
     Route: 048
  7. JAKAFI [Suspect]
     Active Substance: RUXOLITINIB
     Dosage: 20 MG IN AM, 25 MG  IN PM
     Route: 048
     Dates: start: 20171107
  8. JAKAFI [Suspect]
     Active Substance: RUXOLITINIB
     Dosage: 25 MG, BID
     Route: 048
  9. JAKAFI [Suspect]
     Active Substance: RUXOLITINIB
     Dosage: 25 MG, BID
     Route: 065
  10. JAKAFI [Suspect]
     Active Substance: RUXOLITINIB
     Dosage: 25 MG, BID
     Route: 065
  11. JAKAFI [Suspect]
     Active Substance: RUXOLITINIB
     Dosage: 25 MG, BID
     Route: 048
  12. JAKAFI [Suspect]
     Active Substance: RUXOLITINIB
     Dosage: 25 MILLIGRAM, BID
     Route: 048
  13. JAKAFI [Suspect]
     Active Substance: RUXOLITINIB
     Dosage: 25 MG, BID
     Route: 048
     Dates: start: 20170713
  14. JAKAFI [Suspect]
     Active Substance: RUXOLITINIB
     Dosage: 25 MILLIGRAM, BID
     Route: 048
     Dates: start: 201707
  15. JAKAFI [Suspect]
     Active Substance: RUXOLITINIB
     Dosage: 25 MG, BID
     Route: 048
     Dates: start: 20170714
  16. JAKAFI [Suspect]
     Active Substance: RUXOLITINIB
     Dosage: 25 MG, BID
     Route: 048
  17. JAKAFI [Suspect]
     Active Substance: RUXOLITINIB
     Dosage: 25 MILLIGRAM, BID
     Route: 048
     Dates: start: 20170527
  18. JAKAFI [Suspect]
     Active Substance: RUXOLITINIB
     Dosage: 25 MILLIGRAM, BID
     Route: 048
     Dates: start: 201902
  19. JAKAFI [Suspect]
     Active Substance: RUXOLITINIB
     Dosage: 25 MILLIGRAM, BID
     Route: 048
  20. JAKAFI [Suspect]
     Active Substance: RUXOLITINIB
     Dosage: 25 MG, BID
     Route: 048
  21. JAKAFI [Suspect]
     Active Substance: RUXOLITINIB
     Dosage: 25 MILLIGRAM, BID
     Route: 048
  22. JAKAFI [Suspect]
     Active Substance: RUXOLITINIB
     Dosage: 25 MILLIGRAM, BID
     Route: 048
  23. JAKAFI [Suspect]
     Active Substance: RUXOLITINIB
     Dosage: 25 MILLIGRAM, BID
     Route: 048
     Dates: start: 201707
  24. JAKAFI [Suspect]
     Active Substance: RUXOLITINIB
     Dosage: 25 MILLIGRAM, BID
     Route: 048
     Dates: start: 201711
  25. BRILINTA [Suspect]
     Active Substance: TICAGRELOR
     Indication: Product used for unknown indication
     Dosage: 90 MILLIGRAM, BID
     Route: 065
  26. ELIQUIS [Suspect]
     Active Substance: APIXABAN
     Indication: Product used for unknown indication
     Route: 065
  27. HYDREA [Suspect]
     Active Substance: HYDROXYUREA
     Indication: Product used for unknown indication
     Dosage: 500 MILLIGRAM, QD
     Route: 065
  28. HYDREA [Suspect]
     Active Substance: HYDROXYUREA
     Dosage: 500 MILLIGRAM, BID
     Route: 065
  29. HYDREA [Suspect]
     Active Substance: HYDROXYUREA
     Dosage: BID ON WEEKDAYS AND QD ON WEEKENDS
     Route: 065
  30. TIMOLOL [Concomitant]
     Active Substance: TIMOLOL
     Indication: Product used for unknown indication
     Dosage: UNK, QD
     Route: 065
  31. AZOPT [Concomitant]
     Active Substance: BRINZOLAMIDE
     Indication: Product used for unknown indication
     Route: 065
  32. LUMIGAN [Concomitant]
     Active Substance: BIMATOPROST
     Indication: Product used for unknown indication
     Route: 065
  33. ALLOPURINOL [Concomitant]
     Active Substance: ALLOPURINOL
     Indication: Product used for unknown indication
     Dosage: 100 MG, QD
     Route: 048
  34. ALLOPURINOL [Concomitant]
     Active Substance: ALLOPURINOL
     Dosage: 50 MILLIGRAM
     Route: 065
  35. VITAMIN D                          /00107901/ [Concomitant]
     Indication: Product used for unknown indication
     Dosage: 50,000 IU ONCE A WEEK/200 IU DAILY
     Route: 065
  36. VITAMIN D                          /00107901/ [Concomitant]
     Dosage: ONCE WEEKLY
     Route: 065
  37. ENALAPRIL [Concomitant]
     Active Substance: ENALAPRIL
     Indication: Product used for unknown indication
     Dosage: 20 MG, QD
     Route: 065
  38. ENALAPRIL [Concomitant]
     Active Substance: ENALAPRIL
     Dosage: 20MG QAM AND 10MG QPM
     Route: 065
  39. ENALAPRIL [Concomitant]
     Active Substance: ENALAPRIL
     Dosage: 10 MG QAM, 20 MG QPM
     Route: 065
  40. ENALAPRIL [Concomitant]
     Active Substance: ENALAPRIL
     Dosage: QAM AND QPM
     Route: 065
  41. MAGNESIUM OXIDE [Concomitant]
     Active Substance: MAGNESIUM OXIDE
     Indication: Product used for unknown indication
     Route: 065
  42. METFORMIN [Concomitant]
     Active Substance: METFORMIN HYDROCHLORIDE
     Indication: Product used for unknown indication
     Dosage: 500 MILLIGRAM, QD
     Route: 048
  43. MAGNESIUM [Concomitant]
     Active Substance: MAGNESIUM
     Indication: Product used for unknown indication
     Route: 065
  44. ASPIRIN                            /00002701/ [Concomitant]
     Indication: Product used for unknown indication
     Dosage: 81 MILLIGRAM, QD
     Route: 065
  45. DORZOLAMIDE [Concomitant]
     Active Substance: DORZOLAMIDE
     Indication: Product used for unknown indication
     Dosage: UNK, BID
     Route: 065
  46. VITAMIN D2 [Concomitant]
     Active Substance: ERGOCALCIFEROL
     Indication: Product used for unknown indication
     Route: 065
  47. LATANOPROST [Concomitant]
     Active Substance: LATANOPROST
     Indication: Product used for unknown indication
     Dosage: ONE DROP AT NIGHT
     Route: 065
  48. SODIUM CHLORIDE [Concomitant]
     Active Substance: SODIUM CHLORIDE
     Indication: Product used for unknown indication
     Route: 065
  49. FLONASE                            /00908302/ [Concomitant]
     Indication: Product used for unknown indication
     Route: 065
  50. ZETIA [Concomitant]
     Active Substance: EZETIMIBE
     Indication: Product used for unknown indication
     Route: 065
  51. METOPROLOL TARTRATE [Concomitant]
     Active Substance: METOPROLOL TARTRATE
     Indication: Product used for unknown indication
     Dosage: 50 MILLIGRAM, BID
     Route: 065
  52. METOPROLOL TARTRATE [Concomitant]
     Active Substance: METOPROLOL TARTRATE
     Dosage: UNK
     Route: 065
  53. NITROGLYCERIN [Concomitant]
     Active Substance: NITROGLYCERIN
     Indication: Product used for unknown indication
     Dosage: UNK, PRN
     Route: 065
  54. CRESTOR [Concomitant]
     Active Substance: ROSUVASTATIN CALCIUM
     Indication: Product used for unknown indication
     Route: 065
  55. LOVASTATIN [Concomitant]
     Active Substance: LOVASTATIN
     Indication: Product used for unknown indication
     Route: 065
  56. MODERNA COVID-19 VACCINE [Concomitant]
     Active Substance: ELASOMERAN
     Indication: Product used for unknown indication
     Route: 065
  57. ASPIRIN [Concomitant]
     Active Substance: ASPIRIN
     Indication: Product used for unknown indication
     Route: 065

REACTIONS (63)
  - Deep vein thrombosis [Unknown]
  - Intestinal perforation [Unknown]
  - Pulmonary thrombosis [Unknown]
  - Pulmonary embolism [Recovering/Resolving]
  - Chest pain [Unknown]
  - Full blood count abnormal [Not Recovered/Not Resolved]
  - Neuropathy peripheral [Recovered/Resolved]
  - Precancerous skin lesion [Unknown]
  - Myocardial infarction [Unknown]
  - Haemorrhage [Unknown]
  - Glaucoma [Unknown]
  - Pneumonia viral [Recovering/Resolving]
  - Appendicitis perforated [Recovered/Resolved]
  - Thrombosis [Unknown]
  - Basal cell carcinoma [Unknown]
  - Vertigo [Recovered/Resolved]
  - Iron deficiency [Unknown]
  - Anaemia macrocytic [Unknown]
  - Incorrect dose administered [Unknown]
  - Product availability issue [Unknown]
  - Abdominal pain upper [Unknown]
  - Weight increased [Not Recovered/Not Resolved]
  - Nasopharyngitis [Unknown]
  - Diarrhoea [Unknown]
  - Dizziness [Unknown]
  - Oedema peripheral [Unknown]
  - Haemoglobin decreased [Unknown]
  - Headache [Unknown]
  - Haematocrit decreased [Unknown]
  - Fatigue [Unknown]
  - Blood cholesterol increased [Not Recovered/Not Resolved]
  - Anaemia [Not Recovered/Not Resolved]
  - Hypertension [Not Recovered/Not Resolved]
  - Haematoma [Unknown]
  - Red blood cell count decreased [Unknown]
  - Platelet count decreased [Unknown]
  - Dyspnoea [Unknown]
  - Platelet count increased [Not Recovered/Not Resolved]
  - Bone pain [Recovered/Resolved]
  - Insomnia [Unknown]
  - Night sweats [Not Recovered/Not Resolved]
  - Migraine with aura [Recovering/Resolving]
  - Hot flush [Recovering/Resolving]
  - Pain in extremity [Recovered/Resolved]
  - Energy increased [Unknown]
  - Stress [Unknown]
  - Bronchitis [Unknown]
  - Weight decreased [Recovered/Resolved]
  - Hepatic steatosis [Unknown]
  - Musculoskeletal chest pain [Unknown]
  - Migraine [Unknown]
  - Renal disorder [Unknown]
  - Pain in jaw [Recovered/Resolved]
  - White blood cell count decreased [Unknown]
  - Back pain [Unknown]
  - Carpal tunnel syndrome [Unknown]
  - Scratch [Unknown]
  - Pain [Unknown]
  - Gait disturbance [Recovering/Resolving]
  - Asthenia [Recovering/Resolving]
  - Red blood cell count abnormal [Unknown]
  - Thrombocytosis [Unknown]
  - Ear disorder [Recovered/Resolved]

NARRATIVE: CASE EVENT DATE: 20170101
